FAERS Safety Report 5136772-0 (Version None)
Quarter: 2006Q4

REPORT INFORMATION
  Report Type: 
  Country: None (occurrence: None)
  Receive Date: 20061023
  Receipt Date: 20060801
  Transmission Date: 20070319
  Serious: Yes (Hospitalization, Other)
  Sender: FDA-Public Use
  Company Number: 2006027665

PATIENT
  Age: 60 Year
  Sex: Male
  Weight: 114.3065 kg

DRUGS (1)
  1. BEXTRA [Suspect]
     Dosage: 10 MG (1 IN 1 D)
     Dates: start: 20040301

REACTIONS (14)
  - CELLULITIS [None]
  - DRUG HYPERSENSITIVITY [None]
  - DYSHIDROSIS [None]
  - ECONOMIC PROBLEM [None]
  - ERYTHEMA [None]
  - FURUNCLE [None]
  - IMPETIGO [None]
  - PERIVASCULAR DERMATITIS [None]
  - PRURITUS [None]
  - RASH GENERALISED [None]
  - SKIN INFECTION [None]
  - SKIN LESION [None]
  - STAPHYLOCOCCAL INFECTION [None]
  - SUBCUTANEOUS ABSCESS [None]
